FAERS Safety Report 21355837 (Version 3)
Quarter: 2023Q2

REPORT INFORMATION
  Report Type: Report from Study
  Country: JP (occurrence: JP)
  Receive Date: 20220920
  Receipt Date: 20230618
  Transmission Date: 20230721
  Serious: Yes (Hospitalization)
  Sender: FDA-Public Use
  Company Number: JP-JNJFOC-20220935449

PATIENT
  Age: 72 Year
  Sex: Female

DRUGS (14)
  1. TRACLEER [Suspect]
     Active Substance: BOSENTAN
     Indication: Skin ulcer
     Dosage: AFTER BREAKFAST
     Route: 048
     Dates: start: 20220203, end: 20220310
  2. TOKISHIGYAKUKAGOSHUYUSHOKYOTO [Concomitant]
     Dosage: 3 IN 1 DAY, BEFORE EACH MEAL
     Route: 048
  3. TOKISHIGYAKUKAGOSHUYUSHOKYOTO [Concomitant]
     Dosage: TEMPORARY,IN THE AFTERNOON,DOSE UNKNOWN
     Route: 048
  4. PREDNISOLONE [Concomitant]
     Active Substance: PREDNISOLONE
     Indication: Systemic lupus erythematosus
     Dosage: AFTER BREAKFAST
     Route: 048
     Dates: start: 20160520
  5. CALONAL [Concomitant]
     Active Substance: ACETAMINOPHEN
     Indication: Systemic lupus erythematosus
     Dosage: AFTER BREAKFAST, AFTER DINNER
     Route: 048
     Dates: start: 20170124, end: 20220213
  6. PREGABALIN [Concomitant]
     Active Substance: PREGABALIN
     Indication: Systemic lupus erythematosus
     Dosage: AFTER DINNER
     Route: 048
     Dates: start: 20170124, end: 20221213
  7. VONOPRAZAN FUMARATE [Concomitant]
     Active Substance: VONOPRAZAN FUMARATE
     Indication: Systemic lupus erythematosus
     Dosage: AFTER DINNER
     Route: 048
     Dates: start: 20180626
  8. ACOTIAMIDE HYDROCHLORIDE [Concomitant]
     Active Substance: ACOTIAMIDE HYDROCHLORIDE
     Indication: Systemic lupus erythematosus
     Dosage: 3 IN 1 DAY, BEFORE EACH MEAL
     Route: 048
     Dates: start: 20170124, end: 20221213
  9. METOCLOPRAMIDE [Concomitant]
     Active Substance: METOCLOPRAMIDE
     Indication: Systemic lupus erythematosus
     Dosage: BEFORE EACH MEAL, 3 IN 1 DAY
     Route: 048
     Dates: start: 20170124, end: 20221213
  10. RIVOTRIL [Concomitant]
     Active Substance: CLONAZEPAM
     Indication: Systemic lupus erythematosus
     Dosage: AT BEDTIME
     Route: 048
     Dates: start: 20170124, end: 20221213
  11. PRAMIPEXOLE [Concomitant]
     Active Substance: PRAMIPEXOLE
     Indication: Systemic lupus erythematosus
     Dosage: AFTER BREAKFAST, AFTER DINNER, 2 IN 1 DAY
     Route: 048
     Dates: start: 20170124, end: 20221213
  12. CELECOXIB [Concomitant]
     Active Substance: CELECOXIB
     Indication: Systemic lupus erythematosus
     Dosage: AFTER BREAKFAST
     Route: 048
     Dates: start: 20170124
  13. BIO-THREE [Concomitant]
     Active Substance: HERBALS
     Indication: Systemic lupus erythematosus
     Dosage: AFTER EACH MEAL, 3 IN 1 DAY
     Route: 048
     Dates: start: 20170124, end: 20221213
  14. CALCIUM CARBONATE\CHOLECALCIFEROL\MAGNESIUM CARBONATE [Concomitant]
     Active Substance: CALCIUM CARBONATE\CHOLECALCIFEROL\MAGNESIUM CARBONATE
     Indication: Systemic lupus erythematosus
     Dosage: AFTER BREAKFAST
     Route: 048
     Dates: start: 20220115

REACTIONS (3)
  - Systemic lupus erythematosus [Unknown]
  - Myalgia [Recovered/Resolved]
  - Hepatic function abnormal [Recovered/Resolved]

NARRATIVE: CASE EVENT DATE: 20220310
